FAERS Safety Report 15270550 (Version 2)
Quarter: 2018Q3

REPORT INFORMATION
  Report Type: Spontaneous
  Country: LT (occurrence: LT)
  Receive Date: 20180813
  Receipt Date: 20180911
  Transmission Date: 20181010
  Serious: Yes (Other)
  Sender: FDA-Public Use
  Company Number: LT-ASTELLAS-2018US035642

PATIENT
  Age: 70 Year
  Sex: Female

DRUGS (14)
  1. RIFAMPICIN [Interacting]
     Active Substance: RIFAMPIN
     Dosage: UNK UNK, UNKNOWN FREQ.
     Route: 065
  2. MYCOPHENOLATE MOFETIL. [Suspect]
     Active Substance: MYCOPHENOLATE MOFETIL
     Indication: HEART TRANSPLANT
     Dosage: UNK UNK, UNKNOWN FREQ.
     Route: 065
  3. ADVAGRAF [Interacting]
     Active Substance: TACROLIMUS
     Dosage: UNK UNK, ONCE DAILY (15?20 MG D7?D9)
     Route: 048
  4. ADVAGRAF [Suspect]
     Active Substance: TACROLIMUS
     Indication: HEART TRANSPLANT
     Dosage: UNK UNK, UNKNOWN FREQ.
     Route: 048
     Dates: start: 20160717
  5. RIFAMPICIN [Interacting]
     Active Substance: RIFAMPIN
     Indication: PULMONARY TUBERCULOSIS
     Route: 065
  6. ISONIAZID. [Suspect]
     Active Substance: ISONIAZID
     Indication: PULMONARY TUBERCULOSIS
     Route: 065
  7. PYRAZINAMIDE. [Suspect]
     Active Substance: PYRAZINAMIDE
     Indication: PULMONARY TUBERCULOSIS
     Route: 065
  8. ADVAGRAF [Interacting]
     Active Substance: TACROLIMUS
     Dosage: UNK UNK, UNKNOWN FREQ.
     Route: 048
  9. ADVAGRAF [Interacting]
     Active Substance: TACROLIMUS
     Route: 048
  10. PREDNISOLONE. [Suspect]
     Active Substance: PREDNISOLONE
     Indication: HEART TRANSPLANT
     Dosage: UNK UNK, UNKNOWN FREQ.
     Route: 065
  11. ADVAGRAF [Interacting]
     Active Substance: TACROLIMUS
     Dosage: UNK UNK, ONCE DAILY (20?15 MG D26?30)
     Route: 048
  12. ETHAMBUTOL [Suspect]
     Active Substance: ETHAMBUTOL HYDROCHLORIDE
     Indication: PULMONARY TUBERCULOSIS
     Route: 065
  13. ADVAGRAF [Interacting]
     Active Substance: TACROLIMUS
     Dosage: 10 MG, ONCE DAILY (D6)
     Route: 048
  14. ADVAGRAF [Interacting]
     Active Substance: TACROLIMUS
     Dosage: 25 MG, ONCE DAILY (D21)
     Route: 048

REACTIONS (5)
  - Immunosuppressant drug level decreased [Recovered/Resolved]
  - Pulmonary tuberculosis [Recovered/Resolved]
  - Transplant rejection [Recovered/Resolved]
  - Hepatic enzyme increased [Recovered/Resolved]
  - Drug interaction [Unknown]

NARRATIVE: CASE EVENT DATE: 20170106
